FAERS Safety Report 7885324-8 (Version None)
Quarter: 2011Q4

REPORT INFORMATION
  Report Type: 
  Country: None (occurrence: None)
  Receive Date: 20111102
  Receipt Date: 20111026
  Transmission Date: 20120403
  Serious: Yes (Hospitalization, Other)
  Sender: FDA-Public Use
  Company Number: US-SANOFI-AVENTIS-2011SA071038

PATIENT
  Age: 79 Year
  Sex: Female
  Weight: 73 kg

DRUGS (4)
  1. COUMADIN [Concomitant]
  2. LOVENOX [Concomitant]
  3. TAMSULOSIN HYDROCHLORIDE [Concomitant]
     Dates: end: 20111016
  4. PLAVIX [Suspect]
     Dates: start: 20111015, end: 20111016

REACTIONS (5)
  - HYPERSENSITIVITY [None]
  - PYREXIA [None]
  - URTICARIA [None]
  - URINARY TRACT INFECTION [None]
  - DELIRIUM [None]
